FAERS Safety Report 19752061 (Version 1)
Quarter: 2021Q3

REPORT INFORMATION
  Report Type: Spontaneous
  Country: US (occurrence: US)
  Receive Date: 20210826
  Receipt Date: 20210826
  Transmission Date: 20211014
  Serious: No
  Sender: FDA-Public Use
  Company Number: US-ASTRAZENECA-2021A675267

PATIENT
  Sex: Female

DRUGS (7)
  1. FASENRA [Suspect]
     Active Substance: BENRALIZUMAB
     Dosage: UNKNOWN
     Route: 058
  2. HYDROLIZINE [Concomitant]
     Route: 065
  3. BREO ELLIPTA [Concomitant]
     Active Substance: FLUTICASONE FUROATE\VILANTEROL TRIFENATATE
     Route: 065
  4. BUPRENORPHINE?NALOXONE [Concomitant]
     Active Substance: BUPRENORPHINE\NALOXONE
     Route: 065
  5. ALBUTEROL. [Concomitant]
     Active Substance: ALBUTEROL
     Route: 065
  6. OMEPRAZOLE. [Concomitant]
     Active Substance: OMEPRAZOLE
     Route: 065
  7. OXYBUTANE [Concomitant]
     Route: 065

REACTIONS (5)
  - Dyspnoea [Unknown]
  - Arthralgia [Unknown]
  - Sciatica [Unknown]
  - Headache [Unknown]
  - Dizziness [Unknown]
